FAERS Safety Report 15786485 (Version 2)
Quarter: 2019Q1

REPORT INFORMATION
  Report Type: Report from Study
  Country: GB (occurrence: GB)
  Receive Date: 20190103
  Receipt Date: 20190214
  Transmission Date: 20190417
  Serious: Yes (Other)
  Sender: FDA-Public Use
  Company Number: PHHY2018GB198635

PATIENT
  Age: 38 Year
  Sex: Male

DRUGS (1)
  1. ERELZI [Suspect]
     Active Substance: ETANERCEPT-SZZS
     Indication: PSORIATIC ARTHROPATHY
     Dosage: 50 MG, QW
     Route: 058
     Dates: start: 20181017

REACTIONS (4)
  - Needle issue [Unknown]
  - Device issue [Unknown]
  - Pain [Unknown]
  - Product closure issue [Unknown]

NARRATIVE: CASE EVENT DATE: 20181225
